FAERS Safety Report 7279069-5 (Version None)
Quarter: 2011Q1

REPORT INFORMATION
  Report Type: 
  Country: None (occurrence: None)
  Receive Date: 20110207
  Receipt Date: 20110201
  Transmission Date: 20110831
  Serious: Yes (Death, Hospitalization, Other)
  Sender: FDA-Public Use
  Company Number: PHHY2010JP54229

PATIENT
  Sex: Male
  Weight: 45 kg

DRUGS (17)
  1. CIPROFLOXACIN HCL [Concomitant]
     Dosage: UNK
     Route: 048
     Dates: start: 20091008, end: 20091010
  2. CRAVIT [Concomitant]
     Dosage: UNK
     Route: 048
     Dates: start: 20090926, end: 20091007
  3. MIYA-BM [Concomitant]
     Dosage: UNK
     Route: 048
     Dates: start: 20090925, end: 20091009
  4. RED CELLS MAP [Concomitant]
     Dosage: 2 UNITS EVERY WEEK
     Dates: start: 20090929, end: 20091020
  5. EXJADE [Suspect]
     Indication: LYMPHOMA
     Dosage: 500 MG, DAILY
     Route: 048
     Dates: start: 20091001, end: 20091012
  6. GRAN [Concomitant]
     Dosage: UNK
     Dates: start: 20090925, end: 20091014
  7. PAZUFLOXACIN [Concomitant]
     Indication: DISSEMINATED INTRAVASCULAR COAGULATION
     Dosage: UNK
     Route: 041
     Dates: start: 20091009, end: 20091013
  8. RED CELLS MAP [Concomitant]
     Dosage: 2 UNITS EVERY WEEK
     Dates: start: 20091121, end: 20091130
  9. FENTANYL [Suspect]
     Dosage: UNK
     Dates: start: 20090926, end: 20091002
  10. FOLIAMIN [Concomitant]
     Dosage: UNK
     Route: 048
     Dates: start: 20091002, end: 20091009
  11. HYALEIN [Concomitant]
     Dosage: UNK
     Route: 047
     Dates: start: 20091001, end: 20091014
  12. CONSTAN [Concomitant]
     Indication: PROPHYLAXIS
     Dosage: UNK
     Route: 048
     Dates: start: 20091009, end: 20091014
  13. NAUZELIN [Concomitant]
     Indication: PROPHYLAXIS
     Dosage: UNK
     Route: 048
     Dates: start: 20091007, end: 20091014
  14. LOPEMIN [Concomitant]
     Dosage: UNK
     Route: 048
     Dates: start: 20091006, end: 20091009
  15. RED CELLS MAP [Concomitant]
     Dosage: 2 TO 6 UNITS EVERY 0.5 WEEKS
     Dates: start: 20091021, end: 20091120
  16. RED CELLS MAP [Concomitant]
     Dosage: 2 TO 4 UNITS EVERY 0.5 WEEKS
     Dates: start: 20091201
  17. VFEND [Concomitant]
     Dosage: UNK
     Route: 048
     Dates: start: 20090925, end: 20091014

REACTIONS (12)
  - GASTRITIS HAEMORRHAGIC [None]
  - ALANINE AMINOTRANSFERASE INCREASED [None]
  - PROTEIN URINE PRESENT [None]
  - DISSEMINATED INTRAVASCULAR COAGULATION [None]
  - NAUSEA [None]
  - PNEUMONIA [None]
  - NEOPLASM MALIGNANT [None]
  - BLOOD LACTATE DEHYDROGENASE INCREASED [None]
  - ASPARTATE AMINOTRANSFERASE INCREASED [None]
  - PLATELET COUNT DECREASED [None]
  - BLOOD BILIRUBIN INCREASED [None]
  - GASTROINTESTINAL HAEMORRHAGE [None]
